FAERS Safety Report 18397279 (Version 1)
Quarter: 2020Q4

REPORT INFORMATION
  Report Type: Spontaneous
  Country: US (occurrence: US)
  Receive Date: 20201016
  Receipt Date: 20201016
  Transmission Date: 20210114
  Serious: No
  Sender: FDA-Public Use
  Company Number: None

PATIENT
  Age: 79 Year
  Sex: Female

DRUGS (1)
  1. CAPECITABINE 500MG [Suspect]
     Active Substance: CAPECITABINE
     Route: 048
     Dates: start: 202009

REACTIONS (6)
  - Therapy change [None]
  - Illness [None]
  - Kidney infection [None]
  - Vomiting [None]
  - Dehydration [None]
  - Sepsis [None]

NARRATIVE: CASE EVENT DATE: 20200918
